FAERS Safety Report 9856932 (Version 3)
Quarter: 2015Q1

REPORT INFORMATION
  Report Type: Spontaneous
  Country: IT (occurrence: IT)
  Receive Date: 20140130
  Receipt Date: 20140130
  Transmission Date: 20150721
  Serious: Yes (Other)
  Sender: FDA-Public Use
  Company Number: IT-ACTAVIS-2013-08203

PATIENT
  Age: 42 Year
  Sex: Female

DRUGS (2)
  1. IBUPROFEN (UNKNOWN) [Suspect]
     Active Substance: IBUPROFEN
     Indication: RESPIRATORY TRACT INFECTION
     Dosage: 1200 MG, DAILY
     Route: 048
     Dates: start: 20130329, end: 20130403
  2. CEFUROXIME (UNKNOWN) [Suspect]
     Active Substance: CEFUROXIME
     Indication: UPPER RESPIRATORY TRACT INFECTION
     Dosage: 1500 MG, DAILY
     Route: 048
     Dates: start: 20130329, end: 20130403

REACTIONS (2)
  - Serum sickness-like reaction [Unknown]
  - Rash erythematous [Unknown]

NARRATIVE: CASE EVENT DATE: 20130331
